FAERS Safety Report 23158072 (Version 1)
Quarter: 2023Q4

REPORT INFORMATION
  Report Type: Report from Study
  Country: MX (occurrence: None)
  Receive Date: 20231108
  Receipt Date: 20231108
  Transmission Date: 20240110
  Serious: Yes (Other)
  Sender: FDA-Public Use
  Company Number: 2023A174685

PATIENT
  Age: 588 Month
  Sex: Male

DRUGS (9)
  1. DAPAGLIFLOZIN [Suspect]
     Active Substance: DAPAGLIFLOZIN
     Indication: Cardiac failure
     Route: 048
     Dates: start: 20230601
  2. LINAGLIPTIN [Concomitant]
     Active Substance: LINAGLIPTIN
     Dosage: 1 A DAY
  3. INSULIN NOS [Concomitant]
     Active Substance: INSULIN NOS
     Dosage: 30 UNITS
  4. METOPROLOL [Concomitant]
     Active Substance: METOPROLOL
     Dosage: 1 A DAY
  5. SPIRONOLACTONE [Concomitant]
     Active Substance: SPIRONOLACTONE
     Dosage: 1 A DAY
  6. FUROSEMIDE [Concomitant]
     Active Substance: FUROSEMIDE
     Dosage: 1 A DAY
  7. ENALAPRIL [Concomitant]
     Active Substance: ENALAPRIL
     Dosage: 1 A DAY
  8. CLOPIDOGREL [Concomitant]
     Active Substance: CLOPIDOGREL BISULFATE
     Dosage: 1 A DAY
  9. DIGOXIN [Concomitant]
     Active Substance: DIGOXIN
     Dosage: 1 A DAY

REACTIONS (10)
  - Arrhythmia [Recovered/Resolved]
  - Asphyxia [Unknown]
  - Laboratory test abnormal [Unknown]
  - Blood uric acid increased [Unknown]
  - Blood triglycerides increased [Unknown]
  - Blood glucose increased [Unknown]
  - Dyspnoea [Not Recovered/Not Resolved]
  - Hypotension [Not Recovered/Not Resolved]
  - Obstructive airways disorder [Not Recovered/Not Resolved]
  - Nausea [Unknown]

NARRATIVE: CASE EVENT DATE: 20230701
